FAERS Safety Report 11561232 (Version 2)
Quarter: 2015Q4

REPORT INFORMATION
  Report Type: Spontaneous
  Country: SE (occurrence: SE)
  Receive Date: 20150928
  Receipt Date: 20151005
  Transmission Date: 20160304
  Serious: Yes (Death, Hospitalization)
  Sender: FDA-Public Use
  Company Number: SE-HTU-2014SE010372

PATIENT
  Age: 33 Year
  Sex: Female
  Weight: 60 kg

DRUGS (6)
  1. EMEND [Interacting]
     Active Substance: APREPITANT
     Indication: PROPHYLAXIS OF NAUSEA AND VOMITING
     Dosage: 120 MG, QD
     Dates: start: 20140217, end: 20140217
  2. ALOXI [Suspect]
     Active Substance: PALONOSETRON HYDROCHLORIDE
     Indication: PROPHYLAXIS OF NAUSEA AND VOMITING
     Dosage: 0.25 MG, SINGLE
     Route: 042
     Dates: start: 20140217, end: 20140217
  3. BETAPRED [Concomitant]
     Active Substance: BETAMETHASONE SODIUM PHOSPHATE
     Indication: PROPHYLAXIS OF NAUSEA AND VOMITING
     Dosage: 12 MG, QD
     Route: 048
     Dates: start: 20140217, end: 20140217
  4. YONDELIS [Interacting]
     Active Substance: TRABECTEDIN
     Dosage: 2.27 MG, UNK
     Route: 042
     Dates: start: 20140217, end: 20140218
  5. EMEND [Interacting]
     Active Substance: APREPITANT
     Dosage: 80 MG, QD
     Dates: start: 20140218, end: 20140218
  6. YONDELIS [Interacting]
     Active Substance: TRABECTEDIN
     Indication: SYNOVIAL SARCOMA METASTATIC
     Dosage: 2.58 MG, UNK
     Route: 042
     Dates: start: 20140127, end: 20140127

REACTIONS (8)
  - Weight decreased [None]
  - Bone marrow failure [Fatal]
  - Drug ineffective [Unknown]
  - Dehydration [None]
  - Drug interaction [None]
  - Renal failure [Fatal]
  - Hepatic failure [Fatal]
  - Wound infection staphylococcal [None]

NARRATIVE: CASE EVENT DATE: 20140219
